FAERS Safety Report 6212766-9 (Version None)
Quarter: 2009Q2

REPORT INFORMATION
  Report Type: 
  Country: None (occurrence: None)
  Receive Date: 20090603
  Receipt Date: 20090527
  Transmission Date: 20091009
  Serious: Yes (Other)
  Sender: FDA-Public Use
  Company Number: BR-ABBOTT-09P-020-0576694-00

PATIENT
  Age: 24 Year
  Sex: Female
  Weight: 53 kg

DRUGS (5)
  1. DEPAKOTE [Suspect]
     Indication: HEADACHE
     Route: 048
     Dates: start: 20090518
  2. DEPAKOTE [Suspect]
     Indication: VOMITING
  3. DEPAKOTE [Suspect]
     Indication: DIZZINESS
  4. DEPAKOTE [Suspect]
     Indication: SYNCOPE
  5. GESTODENE/ETHINYLESTRADIOL (PREVIANE) [Concomitant]
     Indication: CONTRACEPTION
     Route: 048

REACTIONS (5)
  - GENERALISED ERYTHEMA [None]
  - MEMORY IMPAIRMENT [None]
  - OFF LABEL USE [None]
  - PETIT MAL EPILEPSY [None]
  - TREMOR [None]
